FAERS Safety Report 5307141-5 (Version None)
Quarter: 2007Q2

REPORT INFORMATION
  Report Type: 
  Country: None (occurrence: None)
  Receive Date: 20070420
  Receipt Date: 20070420
  Transmission Date: 20071010
  Serious: Yes (Life-Threatening, Hospitalization)
  Sender: FDA-Public Use
  Company Number: None

PATIENT
  Age: 51 Year
  Sex: Female
  Weight: 58.1 kg

DRUGS (11)
  1. NOXAFIL [Suspect]
     Indication: FEBRILE NEUTROPENIA
     Dosage: 400 MG BID PO
     Route: 048
     Dates: start: 20070319, end: 20070327
  2. THALIDOMIDE [Concomitant]
  3. HIGH DOSE DEXAMETHASONE [Concomitant]
  4. MELPHALAN [Concomitant]
  5. TOPROL-XL [Concomitant]
  6. TOPAMAX [Concomitant]
  7. GEMFIBROZIL [Concomitant]
  8. NEXIUM [Concomitant]
  9. XANAX [Concomitant]
  10. PERCOCET [Concomitant]
  11. EFFEXOR [Concomitant]

REACTIONS (1)
  - HEPATITIS ACUTE [None]
